FAERS Safety Report 8572968 (Version 4)
Quarter: 2013Q2

REPORT INFORMATION
  Report Type: Report from Study
  Country: MX (occurrence: MX)
  Receive Date: 20120522
  Receipt Date: 20130502
  Transmission Date: 20140414
  Serious: Yes (Death, Hospitalization, Other)
  Sender: FDA-Public Use
  Company Number: PHHY2012MX043120

PATIENT
  Age: 58 Year
  Sex: Female

DRUGS (1)
  1. ACLASTA [Suspect]
     Indication: OSTEOPOROSIS
     Dosage: 5 MG/100 ML, TWICE A YEAR
     Route: 042
     Dates: start: 201109

REACTIONS (6)
  - Procedural complication [Fatal]
  - Rheumatoid arthritis [Unknown]
  - Spinal fusion acquired [Unknown]
  - Gait disturbance [Unknown]
  - Bone marrow disorder [Unknown]
  - Inappropriate schedule of drug administration [Unknown]
